FAERS Safety Report 7415682-X (Version None)
Quarter: 2011Q2

REPORT INFORMATION
  Report Type: 
  Country: None (occurrence: None)
  Receive Date: 20110414
  Receipt Date: 20110408
  Transmission Date: 20111010
  Serious: Yes (Other)
  Sender: FDA-Public Use
  Company Number: BR-MERCK-1104BRA00025

PATIENT
  Age: 67 Year
  Sex: Female
  Weight: 50 kg

DRUGS (2)
  1. LITHIUM CARBONATE [Concomitant]
     Route: 065
     Dates: start: 19800101
  2. SINEMET [Suspect]
     Indication: PARKINSON'S DISEASE
     Route: 048
     Dates: start: 20110101, end: 20110101

REACTIONS (2)
  - VOMITING [None]
  - PANCREATITIS [None]
